FAERS Safety Report 4883301-2 (Version None)
Quarter: 2006Q1

REPORT INFORMATION
  Report Type: 
  Country: None (occurrence: None)
  Receive Date: 20060118
  Receipt Date: 20050811
  Transmission Date: 20060701
  Serious: Yes (Hospitalization)
  Sender: FDA-Public Use
  Company Number: MC200500458

PATIENT
  Age: 68 Year
  Sex: Male
  Weight: 99 kg

DRUGS (17)
  1. CARVEDILOL [Suspect]
     Dosage: 6.25MG PER DAY
     Route: 048
     Dates: start: 20050513
  2. DIGOXIN [Suspect]
     Indication: ATRIAL FIBRILLATION
     Dosage: .75MG PER DAY
     Route: 042
     Dates: start: 20050513
  3. INTEGRILIN [Suspect]
     Dosage: 180MCK PER DAY
     Route: 042
     Dates: start: 20050506
  4. BIVALIRUDIN [Suspect]
     Indication: ACUTE CORONARY SYNDROME
     Route: 042
     Dates: start: 20050506
  5. INSULIN [Concomitant]
  6. ASPIRIN [Concomitant]
  7. DILTIAZEM HCL [Concomitant]
  8. SALMETEROL [Concomitant]
  9. SALMETEROL XINAFOATE + FLUTICASONE PROPIONATE [Concomitant]
  10. FUROSEMIDE [Concomitant]
  11. LANSOPRAZOLE [Concomitant]
  12. LEVOTHYROXINE SODIUM [Concomitant]
  13. POTASSIUM [Concomitant]
  14. RAMIPRIL [Concomitant]
  15. WARFARIN [Concomitant]
  16. CLOPIDOGREL [Concomitant]
  17. HYDROCODONE BITARTRATE [Concomitant]

REACTIONS (3)
  - ATRIAL FIBRILLATION [None]
  - ATRIOVENTRICULAR BLOCK [None]
  - SICK SINUS SYNDROME [None]
